FAERS Safety Report 5660992-X (Version None)
Quarter: 2008Q1

REPORT INFORMATION
  Report Type: 
  Country: None (occurrence: None)
  Receive Date: 20080311
  Receipt Date: 20080306
  Transmission Date: 20080703
  Serious: Yes (Life-Threatening, Hospitalization, Other)
  Sender: FDA-Public Use
  Company Number: SE-ABBOTT-08P-150-0440590-00

PATIENT
  Age: 88 Year
  Sex: Female

DRUGS (2)
  1. ZEMPLAR [Suspect]
     Indication: DRUG USE FOR UNKNOWN INDICATION
  2. DIAZEPAM [Concomitant]
     Indication: CONVULSION
     Dates: start: 20080220

REACTIONS (27)
  - ACTIVITIES OF DAILY LIVING IMPAIRED [None]
  - ANXIETY [None]
  - APHASIA [None]
  - ARTHRALGIA [None]
  - BACK PAIN [None]
  - BACTERIA URINE [None]
  - BEDRIDDEN [None]
  - BODY TEMPERATURE INCREASED [None]
  - CEREBRAL HAEMORRHAGE [None]
  - CONFUSIONAL STATE [None]
  - DISORIENTATION [None]
  - FALL [None]
  - FATIGUE [None]
  - GLASGOW COMA SCALE ABNORMAL [None]
  - HEAD INJURY [None]
  - HEART RATE INCREASED [None]
  - INTRACRANIAL PRESSURE INCREASED [None]
  - MICTURITION FREQUENCY DECREASED [None]
  - MOBILITY DECREASED [None]
  - MOTOR DYSFUNCTION [None]
  - MUSCLE SPASMS [None]
  - PALPATORY FINDING ABNORMAL [None]
  - RALES [None]
  - RESPIRATORY FAILURE [None]
  - RHONCHI [None]
  - SUBDURAL HAEMATOMA [None]
  - UNEVALUABLE EVENT [None]
